FAERS Safety Report 11224996 (Version 3)
Quarter: 2015Q3

REPORT INFORMATION
  Report Type: Spontaneous
  Country: JP (occurrence: JP)
  Receive Date: 20150629
  Receipt Date: 20150730
  Transmission Date: 20151125
  Serious: Yes (Other)
  Sender: FDA-Public Use
  Company Number: JP-BAYER-2015-360820

PATIENT
  Age: 33 Year
  Sex: Female

DRUGS (3)
  1. PREDNISOLONE [PREDNISOLONE] [Concomitant]
     Indication: POLYMYOSITIS
     Dosage: DAILY DOSE 14 MG
     Route: 048
  2. HEPARIN [Concomitant]
     Active Substance: HEPARIN SODIUM
     Route: 058
  3. BAYASPIRIN [Suspect]
     Active Substance: ASPIRIN
     Indication: POLYMYOSITIS
     Dosage: 100 MG, QD
     Route: 048

REACTIONS (3)
  - Maternal exposure during pregnancy [Recovered/Resolved]
  - Premature rupture of membranes [Recovered/Resolved]
  - Premature labour [Recovered/Resolved]
